FAERS Safety Report 11068706 (Version 1)
Quarter: 2015Q2

REPORT INFORMATION
  Report Type: Spontaneous
  Country: US (occurrence: None)
  Receive Date: 20150424
  Receipt Date: 20150424
  Transmission Date: 20150821
  Serious: No
  Sender: FDA-Public Use
  Company Number: None

PATIENT
  Age: 59 Year
  Sex: Male

DRUGS (1)
  1. HUMIRA [Suspect]
     Active Substance: ADALIMUMAB
     Indication: RHEUMATOID ARTHRITIS
     Route: 058
     Dates: start: 20150304, end: 20150420

REACTIONS (5)
  - Sleep disorder [None]
  - Dyspnoea [None]
  - Cough [None]
  - Rhinorrhoea [None]
  - Fatigue [None]

NARRATIVE: CASE EVENT DATE: 20150410
